FAERS Safety Report 5085404-9 (Version None)
Quarter: 2006Q3

REPORT INFORMATION
  Report Type: 
  Country: None (occurrence: None)
  Receive Date: 20060822
  Receipt Date: 20060809
  Transmission Date: 20061208
  Serious: Yes (Hospitalization)
  Sender: FDA-Public Use
  Company Number: JP-NOVOPROD-255952

PATIENT
  Age: 7 Year
  Sex: Male
  Weight: 15 kg

DRUGS (1)
  1. NORDITROPIN SIMPLEXX [Suspect]
     Indication: SMALL FOR DATES BABY
     Dosage: UNK, UNK
     Route: 058
     Dates: start: 20050929

REACTIONS (1)
  - NEPHRITIC SYNDROME [None]
